FAERS Safety Report 4500750-2 (Version None)
Quarter: 2004Q4

REPORT INFORMATION
  Report Type: 
  Country: None (occurrence: None)
  Receive Date: 20041109
  Receipt Date: 20041026
  Transmission Date: 20050328
  Serious: Yes (Death)
  Sender: FDA-Public Use
  Company Number: USA041082296

PATIENT

DRUGS (1)
  1. XIGRIS [Suspect]
     Dates: start: 20020101

REACTIONS (1)
  - HAEMORRHAGE [None]
